FAERS Safety Report 7573445-9 (Version None)
Quarter: 2011Q2

REPORT INFORMATION
  Report Type: 
  Country: None (occurrence: None)
  Receive Date: 20110627
  Receipt Date: 20110615
  Transmission Date: 20111010
  Serious: Yes (Other)
  Sender: FDA-Public Use
  Company Number: US-AMGEN-USASP2011030676

PATIENT
  Age: 70 Year
  Sex: Female

DRUGS (1)
  1. ENBREL [Suspect]
     Indication: RHEUMATOID ARTHRITIS
     Dosage: 50 MG, QWK
     Dates: start: 20090301, end: 20110605

REACTIONS (13)
  - RASH [None]
  - ERYTHEMA [None]
  - PRURITUS [None]
  - DYSPNOEA [None]
  - STRESS [None]
  - BURNING SENSATION [None]
  - FEELING HOT [None]
  - WEIGHT DECREASED [None]
  - GASTRIC HAEMORRHAGE [None]
  - CHEST DISCOMFORT [None]
  - CHILLS [None]
  - RHEUMATOID ARTHRITIS [None]
  - IRRITABILITY [None]
